FAERS Safety Report 4283119-8 (Version None)
Quarter: 2004Q1

REPORT INFORMATION
  Report Type: 
  Country: None (occurrence: None)
  Receive Date: 20040129
  Receipt Date: 20040120
  Transmission Date: 20041129
  Serious: Yes (Death)
  Sender: FDA-Public Use
  Company Number: 230053M03FRA

PATIENT
  Sex: Female

DRUGS (4)
  1. REBIF [Suspect]
     Indication: MULTIPLE SCLEROSIS
     Dosage: 44 MCG, 3 IN 1 WEEKS, SUBCUTANEOUS
     Route: 058
     Dates: start: 20021201, end: 20030401
  2. LEVOTHYROXINE SODIUM [Concomitant]
  3. BROMAZEPAM [Concomitant]
  4. MODAFINIL [Concomitant]

REACTIONS (1)
  - COMPLETED SUICIDE [None]
